FAERS Safety Report 13922346 (Version 1)
Quarter: 2017Q3

REPORT INFORMATION
  Report Type: Report from Study
  Country: BR (occurrence: BR)
  Receive Date: 20170830
  Receipt Date: 20170830
  Transmission Date: 20171127
  Serious: Yes (Other)
  Sender: FDA-Public Use
  Company Number: PHHY2017BR123843

PATIENT
  Age: 53 Year
  Sex: Female

DRUGS (5)
  1. DASATINIB [Suspect]
     Active Substance: DASATINIB
     Indication: CHRONIC MYELOID LEUKAEMIA
     Dosage: UNK
     Route: 065
     Dates: start: 2011, end: 2014
  2. GLIVEC [Suspect]
     Active Substance: IMATINIB MESYLATE
     Indication: CHRONIC MYELOID LEUKAEMIA
     Dosage: 3 DF, UNK
     Route: 048
     Dates: end: 2011
  3. GLIVEC [Suspect]
     Active Substance: IMATINIB MESYLATE
     Dosage: 2 DF OF 200 MG, UNK
     Route: 048
     Dates: end: 2011
  4. GLIVEC [Suspect]
     Active Substance: IMATINIB MESYLATE
     Dosage: 3 DF OF 200 MG, UNK (600 MG, QD)
     Route: 048
     Dates: end: 2011
  5. TASIGNA [Suspect]
     Active Substance: NILOTINIB
     Indication: CHRONIC MYELOID LEUKAEMIA
     Dosage: 800 MG, BID
     Route: 048
     Dates: start: 201501

REACTIONS (23)
  - Pyrexia [Unknown]
  - Intestinal ulcer [Unknown]
  - Gait disturbance [Unknown]
  - Thirst [Unknown]
  - Pain [Unknown]
  - Weight increased [Unknown]
  - Fluid retention [Unknown]
  - Crying [Unknown]
  - Bronchitis [Unknown]
  - Diarrhoea [Unknown]
  - Haematochezia [Unknown]
  - Abdominal pain [Unknown]
  - Ear infection [Unknown]
  - Malaise [Unknown]
  - Diabetes mellitus [Unknown]
  - Blood cholesterol increased [Unknown]
  - Bone pain [Unknown]
  - Drug effect incomplete [Unknown]
  - Gastrointestinal disorder [Unknown]
  - Thyroid mass [Unknown]
  - Blood glucose increased [Unknown]
  - Nausea [Unknown]
  - Pain in extremity [Unknown]
